FAERS Safety Report 17403992 (Version 2)
Quarter: 2020Q1

REPORT INFORMATION
  Report Type: Spontaneous
  Country: US (occurrence: US)
  Receive Date: 20200211
  Receipt Date: 20200302
  Transmission Date: 20200409
  Serious: Yes (Other)
  Sender: FDA-Public Use
  Company Number: US-SHIRE-US202004731

PATIENT
  Sex: Male
  Weight: 70.31 kg

DRUGS (1)
  1. ADDERALL XR [Suspect]
     Active Substance: AMPHETAMINE ASPARTATE\AMPHETAMINE SULFATE\DEXTROAMPHETAMINE SACCHARATE\DEXTROAMPHETAMINE SULFATE
     Indication: PRODUCT USED FOR UNKNOWN INDICATION
     Dosage: 20 MILLIGRAM, 3X/DAY:TID
     Route: 048

REACTIONS (6)
  - Staphylococcal infection [Recovered/Resolved]
  - Skin lesion [Not Recovered/Not Resolved]
  - Condition aggravated [Not Recovered/Not Resolved]
  - Hypertension [Unknown]
  - Adverse drug reaction [Unknown]
  - Off label use [Unknown]

NARRATIVE: CASE EVENT DATE: 2019
